FAERS Safety Report 7063199-7 (Version None)
Quarter: 2010Q4

REPORT INFORMATION
  Report Type: 
  Country: None (occurrence: None)
  Receive Date: 20101026
  Receipt Date: 20100521
  Transmission Date: 20110411
  Serious: No
  Sender: FDA-Public Use
  Company Number: US-PFIZER INC-2010039281

PATIENT
  Sex: Male
  Weight: 116 kg

DRUGS (9)
  1. LIPITOR [Suspect]
     Indication: CORONARY ARTERY DISEASE
     Dosage: 10 MG, ONCE DAILY
     Route: 048
     Dates: start: 20100311, end: 20100301
  2. LIPITOR [Suspect]
     Indication: MYOCARDIAL INFARCTION
  3. LIPITOR [Suspect]
     Indication: STENT PLACEMENT
  4. ACETYLSALICYLIC ACID [Concomitant]
     Dosage: UNK
  5. PLAVIX [Concomitant]
     Dosage: UNK
  6. OMEGA-3 MARINE TRIGLYCERIDES [Concomitant]
  7. METOPROLOL [Concomitant]
     Dosage: UNK
  8. OXYCODONE [Concomitant]
     Dosage: UNK
  9. FLEXERIL [Concomitant]
     Dosage: UNK

REACTIONS (1)
  - HYPERHIDROSIS [None]
